FAERS Safety Report 8612806-3 (Version None)
Quarter: 2012Q3

REPORT INFORMATION
  Report Type: 
  Country: None (occurrence: None)
  Receive Date: 20120822
  Receipt Date: 20120207
  Transmission Date: 20120928
  Serious: No
  Sender: FDA-Public Use
  Company Number: US-ASTRAZENECA-2010SE16995

PATIENT
  Age: 47 Year
  Sex: Female

DRUGS (3)
  1. NEXIUM [Suspect]
     Route: 048
  2. SYMBICORT [Suspect]
     Dosage: 160 /4.5 MCG DAILY
     Route: 055
  3. XANAX [Suspect]
     Route: 065

REACTIONS (6)
  - DRUG DOSE OMISSION [None]
  - MALAISE [None]
  - IMMUNODEFICIENCY [None]
  - GASTROOESOPHAGEAL REFLUX DISEASE [None]
  - AMNESIA [None]
  - NAUSEA [None]
